FAERS Safety Report 16826398 (Version 4)
Quarter: 2022Q1

REPORT INFORMATION
  Report Type: Spontaneous
  Country: US (occurrence: US)
  Receive Date: 20190919
  Receipt Date: 20220329
  Transmission Date: 20220424
  Serious: Yes (Other)
  Sender: FDA-Public Use
  Company Number: US-PFIZER INC-2017424328

PATIENT
  Age: 63 Year
  Sex: Female
  Weight: 58.957 kg

DRUGS (1)
  1. XELJANZ [Suspect]
     Active Substance: TOFACITINIB CITRATE
     Indication: Rheumatoid arthritis
     Dosage: 5 MG, 2X/DAY

REACTIONS (3)
  - Cerebral disorder [Not Recovered/Not Resolved]
  - Arthralgia [Unknown]
  - Pain [Unknown]
